FAERS Safety Report 7771360-9 (Version None)
Quarter: 2011Q3

REPORT INFORMATION
  Report Type: 
  Country: None (occurrence: None)
  Receive Date: 20110922
  Receipt Date: 20110912
  Transmission Date: 20111222
  Serious: Yes (Hospitalization)
  Sender: FDA-Public Use
  Company Number: CA-JNJFOC-20110905834

PATIENT
  Sex: Female
  Weight: 71.3 kg

DRUGS (16)
  1. PREDNISONE [Concomitant]
  2. PANTOPRAZOLE SODIUM [Concomitant]
  3. REMICADE [Suspect]
     Indication: CROHN'S DISEASE
     Route: 042
     Dates: start: 20100901
  4. COLCHICINE [Concomitant]
  5. DILAUDID [Concomitant]
  6. ATIVAN [Concomitant]
  7. IMOVANE [Concomitant]
  8. BACLOFEN [Concomitant]
  9. IMURAN [Concomitant]
  10. METOPROLOL [Concomitant]
  11. TORADOL [Concomitant]
  12. LOPERAMIDE HCL [Concomitant]
  13. NEURONTIN [Concomitant]
  14. CYMBALTA [Concomitant]
  15. NYSTATIN [Concomitant]
  16. INDOMETHACIN [Concomitant]

REACTIONS (2)
  - PNEUMONIA [None]
  - COELIAC DISEASE [None]
